FAERS Safety Report 7942228-X (Version None)
Quarter: 2011Q4

REPORT INFORMATION
  Report Type: 
  Country: None (occurrence: None)
  Receive Date: 20111128
  Receipt Date: 20111115
  Transmission Date: 20120403
  Serious: Yes (Hospitalization)
  Sender: FDA-Public Use
  Company Number: US-ELI_LILLY_AND_COMPANY-US201105002414

PATIENT
  Age: 59 Year
  Sex: Female

DRUGS (7)
  1. NIFEDIPINE [Concomitant]
     Dosage: 30 MG, QD
  2. ASPIRIN [Concomitant]
     Dosage: 325 MG, QD
  3. CYMBALTA [Suspect]
     Indication: DEPRESSION
     Dosage: 20 MG, QD
     Dates: start: 20091101, end: 20100101
  4. CYMBALTA [Suspect]
     Dosage: 40 MG, QD
     Dates: start: 20100101, end: 20100127
  5. CARVEDILOL [Concomitant]
     Dosage: 40 MG, QD
  6. CALCIUM CARBONATE [Concomitant]
     Dosage: 600 MG, QD
  7. VITAMIN D [Concomitant]
     Dosage: 600 IU, UNK

REACTIONS (2)
  - STRESS CARDIOMYOPATHY [None]
  - WHITE BLOOD CELL COUNT INCREASED [None]
